FAERS Safety Report 21627629 (Version 8)
Quarter: 2025Q4

REPORT INFORMATION
  Report Type: Spontaneous
  Country: US (occurrence: US)
  Receive Date: 20221122
  Receipt Date: 20251107
  Transmission Date: 20260117
  Serious: No
  Sender: PFIZER
  Company Number: US-PFIZER INC-2016572678

PATIENT
  Age: 80 Year
  Sex: Female
  Weight: 82.086 kg

DRUGS (1)
  1. ESTRING [Suspect]
     Active Substance: ESTRADIOL
     Indication: Atrophic vulvovaginitis
     Dosage: INSERT 1 RING VAGINALLY EVERY 3 MONTHS/7.5 MCG/24 HR VAGINAL RING
     Route: 067
     Dates: start: 20250812

REACTIONS (1)
  - Visual impairment [Unknown]
